FAERS Safety Report 24001890 (Version 4)
Quarter: 2025Q3

REPORT INFORMATION
  Report Type: Spontaneous
  Country: US (occurrence: US)
  Receive Date: 20240622
  Receipt Date: 20250901
  Transmission Date: 20251021
  Serious: Yes (Disabling, Other)
  Sender: AMGEN
  Company Number: US-AMGEN-USASP2024119011

PATIENT
  Age: 57 Year
  Sex: Female
  Weight: 74.83 kg

DRUGS (46)
  1. TEPEZZA [Suspect]
     Active Substance: TEPROTUMUMAB-TRBW
     Indication: Endocrine ophthalmopathy
     Dosage: 750 MILLIGRAM, Q3WK (INFUSION 1)
     Route: 042
     Dates: start: 20210624, end: 20210624
  2. TEPEZZA [Suspect]
     Active Substance: TEPROTUMUMAB-TRBW
     Indication: Graves^ disease
     Dosage: 1500 MILLIGRAM, Q3WK (INFUSION 2)
     Route: 042
     Dates: start: 20210714, end: 20210714
  3. TEPEZZA [Suspect]
     Active Substance: TEPROTUMUMAB-TRBW
     Dosage: 1500 MILLIGRAM, Q3WK (INFUSION 3)
     Route: 042
     Dates: start: 20210802, end: 20210802
  4. TEPEZZA [Suspect]
     Active Substance: TEPROTUMUMAB-TRBW
     Dosage: 1500 MILLIGRAM, Q3WK (INFUSION 4)
     Route: 042
     Dates: start: 20210823, end: 20210823
  5. TEPEZZA [Suspect]
     Active Substance: TEPROTUMUMAB-TRBW
     Dosage: 1500 MILLIGRAM, Q3WK (INFUSION 5)
     Route: 042
     Dates: start: 20210913, end: 20210913
  6. TEPEZZA [Suspect]
     Active Substance: TEPROTUMUMAB-TRBW
     Dosage: 1500 MILLIGRAM, Q3WK (INFUSION 6)
     Route: 042
     Dates: start: 20211004, end: 20211004
  7. TEPEZZA [Suspect]
     Active Substance: TEPROTUMUMAB-TRBW
     Dosage: 1500 MILLIGRAM, Q3WK (INFUSION 7)
     Route: 042
     Dates: start: 20211025, end: 20211025
  8. TEPEZZA [Suspect]
     Active Substance: TEPROTUMUMAB-TRBW
     Dosage: 1500 MILLIGRAM, Q3WK (INFUSION 8)
     Route: 042
     Dates: start: 20211115, end: 20211115
  9. AMITRIPTYLINE [Concomitant]
     Active Substance: AMITRIPTYLINE
  10. AMLODIPINE [Concomitant]
     Active Substance: AMLODIPINE BESYLATE
     Dosage: 5 MILLIGRAM, QD (1-2 TABLETS)
     Route: 048
  11. AMOXICILLIN\CLAVULANATE POTASSIUM [Concomitant]
     Active Substance: AMOXICILLIN\CLAVULANATE POTASSIUM
     Dosage: 875 MG-125 MG,1 TABLET, Q12H
     Route: 048
  12. CEFDINIR [Concomitant]
     Active Substance: CEFDINIR
     Dosage: 300 MILLIGRAM, Q12H AS DIRECTED FOR 7 DAYS
     Route: 048
  13. CYCLOBENZAPRINE [Concomitant]
     Active Substance: CYCLOBENZAPRINE
     Dosage: 10 MILLIGRAM, QD AT BEDTIME
     Route: 048
  14. DEBROX [Concomitant]
     Active Substance: CARBAMIDE PEROXIDE
     Dosage: 5 DROP, BID INSTILL 5 DROPS INTO AFFECTED EAR(S) BY OTIC ROUTE 2 TIMES PER DAY
  15. FUROSEMIDE [Concomitant]
     Active Substance: FUROSEMIDE
     Dosage: 20 MILLIGRAM, QD 1 TABLET AS NEEDED
     Route: 048
  16. HUMALOG [Concomitant]
     Active Substance: INSULIN LISPRO
     Route: 058
  17. HYDROCODONE BITARTRATE AND ACETAMINOPHEN [Concomitant]
     Active Substance: ACETAMINOPHEN\HYDROCODONE BITARTRATE
     Dosage: 10 MG-325 MG TABLET TAKE 1 TABLET, QID
     Route: 048
  18. LIOTHYRONINE [Concomitant]
     Active Substance: LIOTHYRONINE
     Dosage: 5 MICROGRAM, QD 1 TABLET
     Route: 048
  19. MELOXICAM [Concomitant]
     Active Substance: MELOXICAM
     Dosage: 15 MILLIGRAM, QD TAKE 1 TABLET
     Route: 048
  20. MUPIROCIN [Concomitant]
     Active Substance: MUPIROCIN
     Dosage: UNK UNK, TID, APPLY A SMALL AMOUNT TO THE AFFECTED AREA
     Route: 061
  21. POTASSIUM CHLORIDE EXTENDED RELEASE [Concomitant]
     Active Substance: POTASSIUM CHLORIDE
     Dosage: 10 MILLIEQUIVALENT, QD TAKE 1 TABLET
     Route: 048
  22. RESTASIS [Concomitant]
     Active Substance: CYCLOSPORINE
     Dosage: UNK, QD
     Route: 047
  23. SYNTHROID [Concomitant]
     Active Substance: LEVOTHYROXINE SODIUM
     Route: 065
  24. SYNTHROID [Concomitant]
     Active Substance: LEVOTHYROXINE SODIUM
     Route: 065
  25. XIIDRA [Concomitant]
     Active Substance: LIFITEGRAST
  26. AUGMENTIN [Concomitant]
     Active Substance: AMOXICILLIN\CLAVULANATE POTASSIUM
     Dosage: 875 MG-125 MG TABLET TAKE 1 TABLET, Q12H
     Route: 048
  27. ATORVASTATIN CALCIUM [Concomitant]
     Active Substance: ATORVASTATIN CALCIUM
     Dosage: 10 MILLIGRAM, QD, TAKE 1 TABLET
  28. IMITREX [Concomitant]
     Active Substance: SUMATRIPTAN SUCCINATE
     Dosage: 5 MILLIGRAM, QD 1 SPRAY AS NEEDED ONE TIME
     Route: 045
  29. VITAMINS [Concomitant]
     Active Substance: VITAMINS
     Route: 048
  30. NEBIVOLOL [Concomitant]
     Active Substance: NEBIVOLOL
     Dosage: 5 MILLIGRAM, QD 1 TABLET
  31. OFLOXACIN [Concomitant]
     Active Substance: OFLOXACIN
  32. PREDNISOLONE ACETATE [Concomitant]
     Active Substance: PREDNISOLONE ACETATE
  33. VITAMIN D3 [Concomitant]
     Active Substance: CHOLECALCIFEROL
     Dosage: 5000 UNIT, QD
  34. ROSUVASTATIN [Concomitant]
     Active Substance: ROSUVASTATIN
     Dosage: 5 MILLIGRAM, QD
     Route: 048
  35. RIZATRIPTAN [Concomitant]
     Active Substance: RIZATRIPTAN
     Indication: Migraine
     Route: 065
  36. FLUTICASONE PROPIONATE [Concomitant]
     Active Substance: FLUTICASONE PROPIONATE
     Dosage: UNK UNK, QD, 2 SPRAYS IN EACH NOSTRIL
     Route: 045
  37. ESTRADIOL [Concomitant]
     Active Substance: ESTRADIOL
     Route: 065
  38. DICLOFENAC SODIUM [Concomitant]
     Active Substance: DICLOFENAC SODIUM
     Dosage: 50 MILLIGRAM, BID
     Route: 048
  39. ELAVIL [Concomitant]
     Active Substance: AMITRIPTYLINE HYDROCHLORIDE
     Route: 065
     Dates: start: 20220808
  40. NORVASC [Concomitant]
     Active Substance: AMLODIPINE BESYLATE
     Route: 065
  41. KLOR-CON M10 [Concomitant]
     Active Substance: POTASSIUM CHLORIDE
     Route: 065
  42. LIPITOR [Concomitant]
     Active Substance: ATORVASTATIN CALCIUM
     Route: 065
     Dates: start: 20221117
  43. DEXTROMETHORPHAN HYDROBROMIDE\PROMETHAZINE HYDROCHLORIDE [Concomitant]
     Active Substance: DEXTROMETHORPHAN HYDROBROMIDE\PROMETHAZINE HYDROCHLORIDE
     Dosage: 5 MILLILITER, Q6H
     Route: 048
     Dates: start: 20221122
  44. VENTOLIN HFA [Concomitant]
     Active Substance: ALBUTEROL SULFATE
     Dosage: UNK UNK, Q6H
     Route: 045
     Dates: start: 20221122
  45. PROVENTIL HFA [Concomitant]
     Active Substance: ALBUTEROL SULFATE
     Route: 045
  46. PROAIR HFA [Concomitant]
     Active Substance: ALBUTEROL SULFATE
     Route: 045

REACTIONS (51)
  - Endocrine ophthalmopathy [Unknown]
  - Graves^ disease [Unknown]
  - Dacryostenosis acquired [Unknown]
  - Neuropathy peripheral [Unknown]
  - Rotator cuff repair [Unknown]
  - Deafness neurosensory [Not Recovered/Not Resolved]
  - Blood glucose increased [Unknown]
  - Emotional distress [Unknown]
  - Anxiety [Unknown]
  - Blood pressure increased [Unknown]
  - Tinnitus [Not Recovered/Not Resolved]
  - Therapeutic product effect incomplete [Unknown]
  - Product communication issue [Unknown]
  - Abdominal pain [Unknown]
  - Sacral pain [Unknown]
  - Oedema peripheral [Unknown]
  - Cough [Unknown]
  - Paranasal sinus hypersecretion [Unknown]
  - Paranasal sinus discomfort [Unknown]
  - Throat irritation [Unknown]
  - Rhinorrhoea [Unknown]
  - Hypoglycaemia [Unknown]
  - Peripheral swelling [Unknown]
  - Urobilinogen urine increased [Unknown]
  - Blood alkaline phosphatase increased [Unknown]
  - Carbon dioxide decreased [Unknown]
  - Arthralgia [Unknown]
  - Rotator cuff syndrome [Unknown]
  - Tendon disorder [Unknown]
  - Bursitis [Unknown]
  - Osteoarthritis [Unknown]
  - Spinal pain [Unknown]
  - Spinal osteoarthritis [Unknown]
  - Sinusitis bacterial [Unknown]
  - Overweight [Unknown]
  - Upper-airway cough syndrome [Unknown]
  - Lymphadenopathy [Unknown]
  - Dizziness [Unknown]
  - Jugular vein distension [Unknown]
  - Inguinal hernia [Unknown]
  - Herpes zoster oticus [Unknown]
  - Cerumen impaction [Unknown]
  - Nasal septum deviation [Unknown]
  - Carbuncle [Unknown]
  - Ear pain [Unknown]
  - Weight decreased [Unknown]
  - Eustachian tube dysfunction [Unknown]
  - Muscle spasms [Unknown]
  - Hypoacusis [Unknown]
  - Dysgeusia [Unknown]
  - Headache [Unknown]

NARRATIVE: CASE EVENT DATE: 20210624
